FAERS Safety Report 7375264-5 (Version None)
Quarter: 2011Q1

REPORT INFORMATION
  Report Type: 
  Country: None (occurrence: None)
  Receive Date: 20110325
  Receipt Date: 20110316
  Transmission Date: 20110831
  Serious: Yes (Hospitalization, Other)
  Sender: FDA-Public Use
  Company Number: US-JNJFOC-20110303458

PATIENT
  Sex: Female
  Weight: 147.3 kg

DRUGS (17)
  1. GOLIMUMAB [Suspect]
     Dosage: WEEKS 0, 4, 8, AND 12
     Route: 058
  2. LISINOPRIL [Concomitant]
     Indication: HYPERTENSION
     Route: 048
  3. BLINDED; GOLIMUMA [Suspect]
     Route: 042
  4. BLINDED; GOLIMUMA [Suspect]
     Indication: RHEUMATOID ARTHRITIS
     Route: 042
  5. PLACEBO [Suspect]
     Indication: RHEUMATOID ARTHRITIS
     Route: 042
  6. GOLIMUMAB [Suspect]
     Indication: RHEUMATOID ARTHRITIS
     Route: 058
  7. PREDNISONE [Concomitant]
     Indication: RHEUMATOID ARTHRITIS
     Route: 048
  8. LASIX [Concomitant]
     Indication: HYPERTENSION
     Route: 048
  9. METHOTREXATE [Concomitant]
     Indication: RHEUMATOID ARTHRITIS
     Route: 058
  10. DICLOFENAC [Concomitant]
     Indication: OSTEOARTHRITIS
     Route: 048
  11. PLACEBO [Suspect]
     Route: 058
  12. MOBIC [Concomitant]
     Indication: OSTEOARTHRITIS
     Route: 048
  13. PREDNISONE [Concomitant]
     Indication: OSTEOARTHRITIS
     Route: 048
  14. POTASSIUM CHLORIDE [Concomitant]
     Indication: MEDICAL DIET
     Route: 048
  15. SYNTHROID [Concomitant]
     Indication: HYPOTHYROIDISM
     Route: 048
  16. DICLOFENAC [Concomitant]
     Indication: RHEUMATOID ARTHRITIS
     Route: 048
  17. FOLIC ACID [Concomitant]
     Indication: MEDICAL DIET
     Route: 048

REACTIONS (1)
  - PNEUMONIA [None]
